FAERS Safety Report 4731370-2 (Version None)
Quarter: 2005Q3

REPORT INFORMATION
  Report Type: 
  Country: None (occurrence: None)
  Receive Date: 20050801
  Receipt Date: 20050801
  Transmission Date: 20060218
  Serious: Yes (Hospitalization)
  Sender: FDA-Public Use
  Company Number: None

PATIENT
  Age: 80 Year
  Sex: Male
  Weight: 92.1 kg

DRUGS (1)
  1. TERAZOSIN [Suspect]

REACTIONS (1)
  - HYPOTENSION [None]
